FAERS Safety Report 19036394 (Version 1)
Quarter: 2021Q1

REPORT INFORMATION
  Report Type: Spontaneous
  Country: US (occurrence: US)
  Receive Date: 20210319
  Receipt Date: 20210319
  Transmission Date: 20210420
  Serious: Yes (Death)
  Sender: FDA-Public Use
  Company Number: None

PATIENT
  Age: 70 Year
  Sex: Male

DRUGS (12)
  1. MEKTOVI [Suspect]
     Active Substance: BINIMETINIB
     Indication: MALIGNANT MELANOMA
     Route: 048
     Dates: start: 20210225, end: 20210319
  2. BRAFTOVI [Suspect]
     Active Substance: ENCORAFENIB
     Indication: MALIGNANT MELANOMA
     Route: 048
     Dates: start: 20210225, end: 20210319
  3. PRILOSEC 2.5MG [Concomitant]
  4. SERTRALINE 50MG [Concomitant]
     Active Substance: SERTRALINE HYDROCHLORIDE
  5. VITAMIN B?12 500MCG [Concomitant]
  6. CALCIUM + D3 600MG [Concomitant]
  7. VITAMIN D3 COMPLETE [Concomitant]
  8. LISINOPRIL 10MG [Concomitant]
     Active Substance: LISINOPRIL
  9. BAYER ADVANCED ASPIRIN 325MG [Concomitant]
  10. SIMVASTATIN 20MG [Concomitant]
     Active Substance: SIMVASTATIN
  11. ACETAMINOPHEN 325MG [Concomitant]
  12. FERROUS SULFATE 325MG [Concomitant]
     Active Substance: FERROUS SULFATE

REACTIONS (1)
  - Death [None]

NARRATIVE: CASE EVENT DATE: 20210307
